FAERS Safety Report 25046802 (Version 1)
Quarter: 2025Q1

REPORT INFORMATION
  Report Type: Other
  Country: IT (occurrence: IT)
  Receive Date: 20250306
  Receipt Date: 20250306
  Transmission Date: 20250409
  Serious: Yes (Hospitalization, Other)
  Sender: LYNE LABORATORIES
  Company Number: IT-Lyne Laboratories Inc.-2172371

PATIENT
  Age: 59 Year
  Sex: Male

DRUGS (19)
  1. DEXAMETHASONE [Suspect]
     Active Substance: DEXAMETHASONE
     Indication: Mantle cell lymphoma
  2. DEXAMETHASONE [Suspect]
     Active Substance: DEXAMETHASONE
     Indication: Immune effector cell-associated neurotoxicity syndrome
  3. DEXAMETHASONE [Suspect]
     Active Substance: DEXAMETHASONE
     Indication: Cytokine release syndrome
  4. RITUXIMAB [Suspect]
     Active Substance: RITUXIMAB
     Dates: start: 202104
  5. PIPERACILLIN AND TAZOBACTAM [Concomitant]
     Active Substance: PIPERACILLIN SODIUM\TAZOBACTAM SODIUM
  6. MAXIPIME [Concomitant]
     Active Substance: CEFEPIME HYDROCHLORIDE
  7. ANAKINRA [Suspect]
     Active Substance: ANAKINRA
  8. TOCILIZUMAB [Suspect]
     Active Substance: TOCILIZUMAB
  9. FLUDARABINE [Suspect]
     Active Substance: FLUDARABINE PHOSPHATE
  10. BREXUCABTAGENE AUTOLEUCEL [Suspect]
     Active Substance: BREXUCABTAGENE AUTOLEUCEL
  11. IBRUTINIB [Suspect]
     Active Substance: IBRUTINIB
     Dates: start: 202111
  12. MELPHALAN [Suspect]
     Active Substance: MELPHALAN
     Dates: start: 202111
  13. ETOPOSIDE [Suspect]
     Active Substance: ETOPOSIDE
     Dates: start: 202111
  14. CYTARABINE [Suspect]
     Active Substance: CYTARABINE
     Dates: start: 202104
  15. CISPLATIN [Suspect]
     Active Substance: CISPLATIN
     Dates: start: 202104
  16. PREDNISONE [Suspect]
     Active Substance: PREDNISONE
     Dates: start: 202104
  17. VINCRISTINE SULFATE [Suspect]
     Active Substance: VINCRISTINE SULFATE
     Dates: start: 202104
  18. DOXORUBICIN HYDROCHLORIDE [Suspect]
     Active Substance: DOXORUBICIN HYDROCHLORIDE
     Dates: start: 202104
  19. CYCLOPHOSPHAMIDE [Suspect]
     Active Substance: CYCLOPHOSPHAMIDE
     Dates: start: 202104

REACTIONS (3)
  - Intestinal perforation [Recovered/Resolved]
  - Product use in unapproved indication [Unknown]
  - Cytomegalovirus infection reactivation [Recovered/Resolved]
